FAERS Safety Report 18888846 (Version 1)
Quarter: 2021Q1

REPORT INFORMATION
  Report Type: Report from Study
  Country: CA (occurrence: CA)
  Receive Date: 20210212
  Receipt Date: 20210212
  Transmission Date: 20210420
  Serious: Yes (Death)
  Sender: FDA-Public Use
  Company Number: CA-PFIZER INC-2021105058

PATIENT
  Age: 71 Year
  Sex: Male

DRUGS (12)
  1. RITUXIMAB. [Suspect]
     Active Substance: RITUXIMAB
     Indication: MICROSCOPIC POLYANGIITIS
     Dosage: UNK
     Route: 042
  2. PREDNISONE. [Concomitant]
     Active Substance: PREDNISONE
  3. RITUXIMAB. [Suspect]
     Active Substance: RITUXIMAB
     Indication: ANTI-NEUTROPHIL CYTOPLASMIC ANTIBODY POSITIVE VASCULITIS
  4. LIPITOR [Concomitant]
     Active Substance: ATORVASTATIN CALCIUM
     Route: 065
  5. SODIUM BICARBONATE. [Concomitant]
     Active Substance: SODIUM BICARBONATE
  6. ATENOLOL. [Concomitant]
     Active Substance: ATENOLOL
  7. LASIX [Concomitant]
     Active Substance: FUROSEMIDE
  8. SEPTRA [Concomitant]
     Active Substance: SULFAMETHOXAZOLE\TRIMETHOPRIM
  9. SYNTHROID [Concomitant]
     Active Substance: LEVOTHYROXINE SODIUM
  10. ATORVASTATIN [Concomitant]
     Active Substance: ATORVASTATIN
  11. ZANTAC [Concomitant]
     Active Substance: RANITIDINE HYDROCHLORIDE
  12. DABIGATRAN [Concomitant]
     Active Substance: DABIGATRAN

REACTIONS (1)
  - Death [Fatal]
